FAERS Safety Report 4265978-8 (Version None)
Quarter: 2004Q1

REPORT INFORMATION
  Report Type: 
  Country: None (occurrence: None)
  Receive Date: 20040106
  Receipt Date: 20031204
  Transmission Date: 20041129
  Serious: Yes (Hospitalization)
  Sender: FDA-Public Use
  Company Number: HQWYE699403NOV03

PATIENT
  Sex: Female

DRUGS (2)
  1. EFFEXOR XR [Suspect]
     Indication: DEPRESSION
     Dosage: 150 MG DAILY; 75 MG DAILY
     Route: 048
     Dates: start: 20000101, end: 20030101
  2. EFFEXOR XR [Suspect]
     Indication: DEPRESSION
     Dosage: 150 MG DAILY; 75 MG DAILY
     Route: 048
     Dates: start: 20030101, end: 20031010

REACTIONS (13)
  - DIZZINESS [None]
  - DRUG WITHDRAWAL SYNDROME [None]
  - DYSARTHRIA [None]
  - ELECTRIC SHOCK [None]
  - ENERGY INCREASED [None]
  - HEART RATE INCREASED [None]
  - HYPERTENSION [None]
  - NAUSEA [None]
  - PAIN [None]
  - PARAESTHESIA [None]
  - SLEEP DISORDER [None]
  - TINNITUS [None]
  - TREMOR [None]
